FAERS Safety Report 9570269 (Version 1)
Quarter: 2013Q3

REPORT INFORMATION
  Report Type: Spontaneous
  Country: US (occurrence: None)
  Receive Date: 20130926
  Receipt Date: 20130926
  Transmission Date: 20140515
  Serious: No
  Sender: FDA-Public Use
  Company Number: None

PATIENT
  Age: 57 Year
  Sex: Female
  Weight: 81.65 kg

DRUGS (2)
  1. LEVOFLOXACIN [Suspect]
     Indication: COUGH
     Dosage: 1/7 PILLS, ONCE DAILY, TAKEN BY MOUTH
     Route: 048
     Dates: start: 20121113, end: 20121113
  2. LEVOFLOXACIN [Suspect]
     Indication: FATIGUE
     Dosage: 1/7 PILLS, ONCE DAILY, TAKEN BY MOUTH
     Route: 048
     Dates: start: 20121113, end: 20121113

REACTIONS (7)
  - Diarrhoea [None]
  - Tinnitus [None]
  - Palpitations [None]
  - Insomnia [None]
  - Mental impairment [None]
  - Sensation of heaviness [None]
  - Oxygen saturation decreased [None]
